FAERS Safety Report 11745236 (Version 1)
Quarter: 2015Q4

REPORT INFORMATION
  Report Type: Spontaneous
  Country: US (occurrence: US)
  Receive Date: 20151117
  Receipt Date: 20151117
  Transmission Date: 20160304
  Serious: No
  Sender: FDA-Public Use
  Company Number: US-SUN PHARMACEUTICAL INDUSTRIES LTD-2015US-104772

PATIENT
  Sex: Male

DRUGS (1)
  1. PHENTERMINE. [Suspect]
     Active Substance: PHENTERMINE
     Indication: WEIGHT DECREASED
     Dosage: 0.5 DF, BID (MORNING AND EVENING)
     Route: 065
     Dates: start: 20150930

REACTIONS (1)
  - Sweat gland disorder [Unknown]

NARRATIVE: CASE EVENT DATE: 20150930
